FAERS Safety Report 17106790 (Version 8)
Quarter: 2023Q2

REPORT INFORMATION
  Report Type: Report from Study
  Country: US (occurrence: US)
  Receive Date: 20191203
  Receipt Date: 20230412
  Transmission Date: 20230722
  Serious: Yes (Hospitalization)
  Sender: FDA-Public Use
  Company Number: US-PFIZER INC-2019493548

PATIENT
  Sex: Female
  Weight: 86.168 kg

DRUGS (2)
  1. SERTRALINE [Suspect]
     Active Substance: SERTRALINE HYDROCHLORIDE
     Indication: Panic attack
     Dosage: 25 MILLIGRAM, TID (25 MG, 3X/DAY)
     Route: 065
  2. SERTRALINE [Suspect]
     Active Substance: SERTRALINE HYDROCHLORIDE
     Indication: Anxiety

REACTIONS (8)
  - Hospitalisation [Unknown]
  - Loss of personal independence in daily activities [Unknown]
  - Thinking abnormal [Unknown]
  - Weight increased [Unknown]
  - Depersonalisation/derealisation disorder [Unknown]
  - Tremor [Unknown]
  - Drug intolerance [Unknown]
  - Drug ineffective [Unknown]
